FAERS Safety Report 12281409 (Version 3)
Quarter: 2016Q4

REPORT INFORMATION
  Report Type: Report from Study
  Country: BR (occurrence: BR)
  Receive Date: 20160419
  Receipt Date: 20161111
  Transmission Date: 20170207
  Serious: Yes (Hospitalization, Other)
  Sender: FDA-Public Use
  Company Number: PHHY2015BR122130

PATIENT
  Age: 71 Year
  Sex: Female
  Weight: 43 kg

DRUGS (10)
  1. DIOVAN HCT [Suspect]
     Active Substance: HYDROCHLOROTHIAZIDE\VALSARTAN
     Indication: PRODUCT USED FOR UNKNOWN INDICATION
     Route: 065
  2. LOSARTAN. [Concomitant]
     Active Substance: LOSARTAN
     Indication: PRODUCT USED FOR UNKNOWN INDICATION
     Dosage: 50 MG, UNK
     Route: 065
  3. ACLASTA [Suspect]
     Active Substance: ZOLEDRONIC ACID
     Dosage: 5 MG, UNK
     Route: 042
     Dates: start: 20151028
  4. DEPURA [Concomitant]
     Active Substance: CHOLECALCIFEROL
     Indication: PRODUCT USED FOR UNKNOWN INDICATION
     Dosage: UNK
     Route: 065
  5. DK2CAL [Concomitant]
     Indication: CALCIUM DEFICIENCY
     Dosage: 1 DF, QD (2 YEARS AGO)
     Route: 048
  6. REUQUINOL [Concomitant]
     Active Substance: HYDROXYCHLOROQUINE SULFATE
     Indication: OSTEOPOROSIS
  7. ACLASTA [Suspect]
     Active Substance: ZOLEDRONIC ACID
     Indication: OSTEOPOROSIS
     Dosage: 5 MG, Q12MO
     Route: 042
     Dates: start: 20141002
  8. ACLASTA [Suspect]
     Active Substance: ZOLEDRONIC ACID
     Dosage: 5 MG, Q12MO
     Route: 042
     Dates: start: 20161025
  9. DESOL [Concomitant]
     Indication: CALCIUM DEFICIENCY
     Dosage: 21 DRP, QW (ALMOST 2 YEARS AGO)
     Route: 048
  10. REUQUINOL [Concomitant]
     Active Substance: HYDROXYCHLOROQUINE SULFATE
     Indication: SYSTEMIC LUPUS ERYTHEMATOSUS
     Dosage: 1 DF, QD (3 YEARS AGO)
     Route: 048

REACTIONS (7)
  - Blood pressure increased [Recovered/Resolved]
  - Malaise [Recovering/Resolving]
  - Body temperature increased [Recovering/Resolving]
  - Blood pressure increased [Recovering/Resolving]
  - Peripheral swelling [Unknown]
  - Blood sodium decreased [Unknown]
  - Anxiety [Recovering/Resolving]

NARRATIVE: CASE EVENT DATE: 20151025
